FAERS Safety Report 10377076 (Version 4)
Quarter: 2014Q3

REPORT INFORMATION
  Report Type: Spontaneous
  Country: US (occurrence: US)
  Receive Date: 20140812
  Receipt Date: 20140904
  Transmission Date: 20150326
  Serious: Yes (Hospitalization)
  Sender: FDA-Public Use
  Company Number: US-UNITED THERAPEUTICS-UNT-2014-005082

PATIENT
  Age: 47 Year
  Sex: Female
  Weight: 136.96 kg

DRUGS (5)
  1. VELETRI [Concomitant]
     Active Substance: EPOPROSTENOL
     Indication: PRODUCT USED FOR UNKNOWN INDICATION
  2. MACITENTAN [Concomitant]
     Active Substance: MACITENTAN
     Indication: PRODUCT USED FOR UNKNOWN INDICATION
  3. WARFARIN [Concomitant]
     Active Substance: WARFARIN
     Indication: PRODUCT USED FOR UNKNOWN INDICATION
  4. REMODULIN [Suspect]
     Active Substance: TREPROSTINIL
     Indication: PULMONARY ARTERIAL HYPERTENSION
     Dosage: 0.00625 ?G/KG, CONTINUING
     Route: 041
     Dates: start: 20140718
  5. REMODULIN [Suspect]
     Active Substance: TREPROSTINIL
     Dosage: 0.0125 ?G/KG, UNK
     Route: 041
     Dates: start: 20140718

REACTIONS (8)
  - Pulmonary hypertension [Unknown]
  - Pain in extremity [Unknown]
  - Headache [Unknown]
  - Hypotension [Recovered/Resolved]
  - Addison^s disease [Recovered/Resolved]
  - Dyspnoea exertional [Unknown]
  - Drug titration error [Unknown]
  - Constipation [Unknown]

NARRATIVE: CASE EVENT DATE: 2014
